FAERS Safety Report 14378680 (Version 2)
Quarter: 2018Q1

REPORT INFORMATION
  Report Type: Spontaneous
  Country: US (occurrence: US)
  Receive Date: 20180112
  Receipt Date: 20180122
  Transmission Date: 20180509
  Serious: Yes (Other)
  Sender: FDA-Public Use
  Company Number: US-AUROBINDO-AUR-APL-2018-001675

PATIENT
  Age: 59 Year
  Sex: Female

DRUGS (1)
  1. LIDOCAINE INJECTION [Suspect]
     Active Substance: LIDOCAINE
     Indication: PRODUCT USED FOR UNKNOWN INDICATION
     Dosage: FIVE 50 MG BOLUSES EVERY FIVE MINUTES WITH A BACKGROUND CONTINUOUS INFUSION RATE OF 50 MG GIVEN O...
     Route: 065

REACTIONS (1)
  - Hypertension [Recovered/Resolved]
